FAERS Safety Report 5947144-0 (Version None)
Quarter: 2008Q4

REPORT INFORMATION
  Report Type: 
  Country: None (occurrence: None)
  Receive Date: 20081106
  Receipt Date: 20081028
  Transmission Date: 20090506
  Serious: Yes (Hospitalization)
  Sender: FDA-Public Use
  Company Number: 1-16626572

PATIENT
  Age: 15 Year
  Sex: Female
  Weight: 94.8018 kg

DRUGS (2)
  1. CLOTRIMAZOLE [Suspect]
     Indication: VULVOVAGINAL MYCOTIC INFECTION
     Dosage: ONE APPLICATOR ONCE DAILY, VAGINAL
     Route: 067
     Dates: start: 20080908
  2. FLAGYL (METRONIDAZOLE) TWICE DAILY [Concomitant]

REACTIONS (2)
  - APPLICATION SITE DISCOLOURATION [None]
  - CEREBROVASCULAR ACCIDENT [None]
